FAERS Safety Report 6077112-2 (Version None)
Quarter: 2009Q1

REPORT INFORMATION
  Report Type: 
  Country: None (occurrence: None)
  Receive Date: 20090213
  Receipt Date: 20090209
  Transmission Date: 20090719
  Serious: Yes (Death, Hospitalization, Other)
  Sender: FDA-Public Use
  Company Number: PHEH2009US01612

PATIENT
  Sex: Male
  Weight: 90.703 kg

DRUGS (3)
  1. ZOMETA [Suspect]
     Dosage: UNK
     Dates: start: 20040101
  2. AREDIA [Suspect]
     Dosage: UNK
     Dates: start: 19990101, end: 20040101
  3. FOSAMAX [Concomitant]

REACTIONS (20)
  - ANAEMIA [None]
  - ASTHENIA [None]
  - ATRIAL FIBRILLATION [None]
  - CEREBROVASCULAR ACCIDENT [None]
  - DEEP VEIN THROMBOSIS [None]
  - DIABETES MELLITUS [None]
  - DIVERTICULUM INTESTINAL [None]
  - GASTRITIS [None]
  - GINGIVAL INFECTION [None]
  - HIATUS HERNIA [None]
  - HYPOGAMMAGLOBULINAEMIA [None]
  - MULTIPLE MYELOMA [None]
  - OPEN FRACTURE [None]
  - OSTEONECROSIS [None]
  - PAIN IN JAW [None]
  - PANCYTOPENIA [None]
  - RENAL CYST [None]
  - SPINAL OSTEOARTHRITIS [None]
  - TOOTH LOSS [None]
  - WEIGHT DECREASED [None]
